FAERS Safety Report 5710703-4 (Version None)
Quarter: 2008Q2

REPORT INFORMATION
  Report Type: 
  Country: None (occurrence: None)
  Receive Date: 20080421
  Receipt Date: 20080410
  Transmission Date: 20081010
  Serious: Yes (Other)
  Sender: FDA-Public Use
  Company Number: US-JNJFOC-20080403591

PATIENT
  Sex: Female
  Weight: 81.65 kg

DRUGS (1)
  1. DOXIL [Suspect]
     Indication: BREAST CANCER
     Dosage: 1ST INFUSION
     Route: 042

REACTIONS (2)
  - RASH [None]
  - SKIN ULCER [None]
